FAERS Safety Report 5962885-7 (Version None)
Quarter: 2008Q4

REPORT INFORMATION
  Report Type: 
  Country: None (occurrence: None)
  Receive Date: 20081124
  Receipt Date: 20081111
  Transmission Date: 20090506
  Serious: Yes (Death)
  Sender: FDA-Public Use
  Company Number: JP-BAYER-200812543BYL

PATIENT
  Age: 83 Year
  Sex: Male
  Weight: 36 kg

DRUGS (3)
  1. CIPROXAN-I.V. [Suspect]
     Indication: PNEUMONIA
     Dosage: TOTAL DAILY DOSE: 600 MG  UNIT DOSE: 300 MG
     Route: 041
     Dates: start: 20080408, end: 20080409
  2. VENOGLOBULIN [Concomitant]
     Dosage: TOTAL DAILY DOSE: 5 G
     Route: 042
     Dates: start: 20080408, end: 20080408
  3. SEISHOKU [Concomitant]
     Dosage: TOTAL DAILY DOSE: 200 ML
     Route: 041
     Dates: start: 20080408, end: 20080409

REACTIONS (1)
  - PNEUMONIA [None]
